FAERS Safety Report 6470797-8 (Version None)
Quarter: 2009Q4

REPORT INFORMATION
  Report Type: 
  Country: None (occurrence: None)
  Receive Date: 20091203
  Receipt Date: 20090513
  Transmission Date: 20100525
  Serious: No
  Sender: FDA-Public Use
  Company Number: US-ABBOTT-09P-163-0573202-00

PATIENT
  Sex: Female
  Weight: 86.26 kg

DRUGS (1)
  1. MERIDIA [Suspect]
     Indication: WEIGHT CONTROL
     Route: 048
     Dates: start: 20090512, end: 20090512

REACTIONS (3)
  - DRUG INEFFECTIVE [None]
  - HEADACHE [None]
  - HYPERTENSION [None]
